FAERS Safety Report 6818980-3 (Version None)
Quarter: 2010Q3

REPORT INFORMATION
  Report Type: 
  Country: None (occurrence: None)
  Receive Date: 20100701
  Receipt Date: 20100622
  Transmission Date: 20110219
  Serious: Yes (Other)
  Sender: FDA-Public Use
  Company Number: 2010SP034709

PATIENT
  Age: 68 Year
  Sex: Female

DRUGS (5)
  1. VECURONIUM BROMIDE (VECURONIUM BROMIDE /00600002/) [Suspect]
     Indication: GENERAL ANAESTHESIA
     Dosage: 7 MG
  2. PROPOFOL [Suspect]
     Indication: GENERAL ANAESTHESIA
     Dosage: 140 MG
  3. FENTANYL-100 [Suspect]
     Indication: GENERAL ANAESTHESIA
     Dosage: 50 MCG
  4. THIAZID [Concomitant]
  5. LOSARTAN POSTASSIUM [Concomitant]

REACTIONS (6)
  - ANAESTHETIC COMPLICATION [None]
  - ANXIETY [None]
  - ARTERIOSCLEROSIS CORONARY ARTERY [None]
  - ARTERIOSPASM CORONARY [None]
  - HYPOTENSION [None]
  - PRINZMETAL ANGINA [None]
